FAERS Safety Report 21936892 (Version 1)
Quarter: 2023Q1

REPORT INFORMATION
  Report Type: Spontaneous
  Country: NL (occurrence: NL)
  Receive Date: 20230201
  Receipt Date: 20230201
  Transmission Date: 20230418
  Serious: Yes (Other)
  Sender: FDA-Public Use
  Company Number: None

PATIENT
  Age: 69 Year
  Sex: Male
  Weight: 88 kg

DRUGS (6)
  1. ATORVASTATIN [Suspect]
     Active Substance: ATORVASTATIN
     Indication: Coronary artery stenosis
     Dosage: 40 MILLIGRAM DAILY; 1X PER DAY, BRAND NAME NOT SPECIFIED
     Dates: start: 20221005, end: 20221227
  2. ATORVASTATIN [Suspect]
     Active Substance: ATORVASTATIN
     Indication: Stent placement
  3. AMLODIPINE [Suspect]
     Active Substance: AMLODIPINE BESYLATE
     Indication: Hypertension
     Dosage: 1 DOSAGE FORMS DAILY; 1X PER DAY
     Dates: start: 20220728
  4. ACETYLSALICYLIC ACID CARDIO MYLAN [Concomitant]
     Indication: Product used for unknown indication
     Dosage: 1 DOSAGE FORMS DAILY; 1X PER DAY
  5. CLOPIDOGREL BESILATE [Concomitant]
     Active Substance: CLOPIDOGREL BESILATE
     Indication: Product used for unknown indication
     Dosage: 1 DOSAGE FORMS DAILY; 1X PER DAY
  6. PANTOPRAZOLE 1A PHARMA [Concomitant]
     Indication: Product used for unknown indication
     Dosage: 1 DOSAGE FORMS DAILY; 1X PER DAY,  PANTOPRAZOLE TABLET MSR 40MG / PANTOPRAZOLE 1A PHARMA TABLET MSR

REACTIONS (2)
  - Muscle rupture [Not Recovered/Not Resolved]
  - Peripheral swelling [Not Recovered/Not Resolved]

NARRATIVE: CASE EVENT DATE: 20221105
